FAERS Safety Report 18575449 (Version 1)
Quarter: 2020Q4

REPORT INFORMATION
  Report Type: Spontaneous
  Country: US (occurrence: US)
  Receive Date: 20201202
  Receipt Date: 20201202
  Transmission Date: 20210114
  Serious: Yes (Other)
  Sender: FDA-Public Use
  Company Number: None

PATIENT
  Age: 44 Year
  Sex: Male
  Weight: 122 kg

DRUGS (1)
  1. CEFEPIME (CEFEPIME HCL 1GM/BAG INJ) [Suspect]
     Active Substance: CEFEPIME HYDROCHLORIDE
     Indication: SEPSIS
     Route: 042
     Dates: start: 20201029, end: 20201029

REACTIONS (3)
  - Anaphylactic reaction [None]
  - Periorbital swelling [None]
  - Oxygen saturation decreased [None]

NARRATIVE: CASE EVENT DATE: 20201029
